FAERS Safety Report 7704990-0 (Version None)
Quarter: 2011Q3

REPORT INFORMATION
  Report Type: 
  Country: None (occurrence: None)
  Receive Date: 20110823
  Receipt Date: 20110811
  Transmission Date: 20111222
  Serious: Yes (Hospitalization, Other)
  Sender: FDA-Public Use
  Company Number: US-ASTRAZENECA-2011SE27478

PATIENT
  Age: 72 Year
  Sex: Male

DRUGS (3)
  1. CRESTOR [Suspect]
     Route: 048
  2. LIPITOR [Concomitant]
  3. ZOCOR [Concomitant]

REACTIONS (1)
  - CARDIAC OPERATION [None]
